FAERS Safety Report 6396227-2 (Version None)
Quarter: 2009Q4

REPORT INFORMATION
  Report Type: 
  Country: None (occurrence: None)
  Receive Date: 20091012
  Receipt Date: 20071121
  Transmission Date: 20100525
  Serious: Yes (Death, Other)
  Sender: FDA-Public Use
  Company Number: US-ASTRAZENECA-2006UW08133

PATIENT
  Age: 26331 Day
  Sex: Male
  Weight: 103.4 kg

DRUGS (8)
  1. SEROQUEL [Suspect]
     Indication: ABNORMAL BEHAVIOUR
     Route: 048
     Dates: start: 20050101, end: 20051001
  2. SEROQUEL [Suspect]
     Dosage: 12.5 MG, 25 MG, 75 MG, 100 MG
     Route: 048
     Dates: start: 20050127
  3. RISPERDAL [Concomitant]
     Dates: start: 20041201
  4. ARICEPT [Concomitant]
     Dates: start: 20051020
  5. DEPAKOTE [Concomitant]
     Dates: start: 20050531
  6. NAMENDA [Concomitant]
     Dates: start: 20050531
  7. GLYBURIDE [Concomitant]
     Dates: start: 20050601
  8. ASPIRIN [Concomitant]
     Dates: start: 20050610

REACTIONS (3)
  - PANCREAS INFECTION [None]
  - PANCREATITIS [None]
  - PANCREATITIS ACUTE [None]
